FAERS Safety Report 6102380-8 (Version None)
Quarter: 2009Q1

REPORT INFORMATION
  Report Type: 
  Country: None (occurrence: None)
  Receive Date: 20090304
  Receipt Date: 20090219
  Transmission Date: 20090719
  Serious: Yes (Hospitalization)
  Sender: FDA-Public Use
  Company Number: KR-ROCHE-599961

PATIENT
  Sex: Female
  Weight: 59 kg

DRUGS (2)
  1. CAPECITABINE [Suspect]
     Indication: GASTRIC CANCER
     Dosage: LAST DOSE PRIOR TO SAE: 21 OCT 2008.
     Route: 048
     Dates: start: 20080506
  2. OXALIPLATIN [Suspect]
     Indication: GASTRIC CANCER
     Dosage: LAST DOSE PRIOR TO SAE: 07 OCT 2008.
     Route: 042
     Dates: start: 20080506

REACTIONS (1)
  - SMALL INTESTINAL OBSTRUCTION [None]
